FAERS Safety Report 20053896 (Version 2)
Quarter: 2021Q4

REPORT INFORMATION
  Report Type: Spontaneous
  Country: US (occurrence: US)
  Receive Date: 20211110
  Receipt Date: 20211122
  Transmission Date: 20220303
  Serious: Yes (Disabling, Other)
  Sender: FDA-Public Use
  Company Number: US-PFIZER INC-202101489326

PATIENT
  Age: 50 Year
  Sex: Female
  Weight: 120.2 kg

DRUGS (2)
  1. LYRICA [Suspect]
     Active Substance: PREGABALIN
     Indication: Neuropathy peripheral
     Dosage: 150 MG, 3X/DAY (150MG 3 TIMES A DAY BY MOUTH)
     Route: 048
     Dates: start: 2016
  2. LYRICA [Suspect]
     Active Substance: PREGABALIN
     Indication: Pain
     Dosage: 150 MG, 2X/DAY (TAKING 2 TIMES)
     Route: 048
     Dates: start: 2016

REACTIONS (2)
  - Neuropathy peripheral [Not Recovered/Not Resolved]
  - Pain [Unknown]
